FAERS Safety Report 24979543 (Version 1)
Quarter: 2025Q1

REPORT INFORMATION
  Report Type: Spontaneous
  Country: US (occurrence: US)
  Receive Date: 20250218
  Receipt Date: 20250218
  Transmission Date: 20250409
  Serious: Yes (Hospitalization)
  Sender: CATALYST PHARMA
  Company Number: US-CATALYST PHARMACEUTICALS, INC-US-CATA-25-00222

PATIENT
  Age: 37 Year
  Sex: Female
  Weight: 55.329 kg

DRUGS (3)
  1. FIRDAPSE [Suspect]
     Active Substance: AMIFAMPRIDINE PHOSPHATE
     Indication: Myasthenic syndrome
     Dosage: TITRATION? 10 MG BY MOUTH 3 TIMES A DAY FOR 7 DAYS, THEN INCREASE BY 5 MG EVERY 5 DAYS UNTIL 6 TABLE
     Route: 048
     Dates: start: 20241122, end: 2024
  2. FIRDAPSE [Suspect]
     Active Substance: AMIFAMPRIDINE PHOSPHATE
     Dosage: 6 TABLETS BY MOUTH DAILY IN DIVIDED DOSES?
     Route: 048
     Dates: start: 20241219
  3. PROPRANOLOL [Concomitant]
     Active Substance: PROPRANOLOL HYDROCHLORIDE
     Indication: Tachycardia
     Route: 065

REACTIONS (1)
  - Mass [Recovered/Resolved]

NARRATIVE: CASE EVENT DATE: 20250205
